FAERS Safety Report 4424051-6 (Version None)
Quarter: 2004Q3

REPORT INFORMATION
  Report Type: 
  Country: None (occurrence: None)
  Receive Date: 20040805
  Receipt Date: 20040805
  Transmission Date: 20050211
  Serious: Yes (Other)
  Sender: FDA-Public Use
  Company Number: None

PATIENT
  Age: 50 Year
  Sex: Female
  Weight: 114.3065 kg

DRUGS (1)
  1. SYNTEST [Suspect]
     Indication: MENOPAUSE
     Dosage: DAILY TABLET (LIFETIME)

REACTIONS (2)
  - CONSTIPATION [None]
  - STOMACH DISCOMFORT [None]
